FAERS Safety Report 9606816 (Version 2)
Quarter: 2013Q4

REPORT INFORMATION
  Report Type: Spontaneous
  Country: US (occurrence: US)
  Receive Date: 20131008
  Receipt Date: 20131008
  Transmission Date: 20140711
  Serious: No
  Sender: FDA-Public Use
  Company Number: US-AMGEN-USASP2013057240

PATIENT
  Age: 83 Year
  Sex: Male
  Weight: 58.5 kg

DRUGS (4)
  1. PROLIA [Suspect]
     Indication: OSTEOPOROSIS
     Dosage: 60 MG, Q6MO
     Route: 058
     Dates: start: 20130724
  2. CALCIUM + VITAMIN D [Concomitant]
     Dosage: UNK
  3. VITAMIN K                          /00032401/ [Concomitant]
  4. VITAMIN D                          /00107901/ [Concomitant]

REACTIONS (1)
  - Localised infection [Recovering/Resolving]
